FAERS Safety Report 13430341 (Version 1)
Quarter: 2017Q2

REPORT INFORMATION
  Report Type: Report from Study
  Country: NZ (occurrence: NZ)
  Receive Date: 20170412
  Receipt Date: 20170412
  Transmission Date: 20170912
  Serious: Yes (Hospitalization)
  Sender: FDA-Public Use
  Company Number: NZ-JNJFOC-20160529033

PATIENT
  Age: 57 Year
  Sex: Male
  Weight: 87.7 kg

DRUGS (4)
  1. PLACEBO [Suspect]
     Route: 048
  2. INSULIN BASAL [Concomitant]
     Active Substance: INSULIN NOS
     Indication: HYPERGLYCAEMIA
     Route: 065
  3. METFORMIN [Concomitant]
     Indication: HYPERGLYCAEMIA
     Route: 065
  4. INSULIN [Concomitant]
     Active Substance: INSULIN NOS
     Indication: HYPERGLYCAEMIA
     Route: 065

REACTIONS (1)
  - Rotator cuff repair [Recovered/Resolved]

NARRATIVE: CASE EVENT DATE: 20160526
